FAERS Safety Report 6062136-1 (Version None)
Quarter: 2009Q1

REPORT INFORMATION
  Report Type: 
  Country: None (occurrence: None)
  Receive Date: 20090130
  Receipt Date: 20090130
  Transmission Date: 20090719
  Serious: Yes (Other)
  Sender: FDA-Public Use
  Company Number: None

PATIENT
  Age: 68 Year
  Sex: Female
  Weight: 61.2356 kg

DRUGS (1)
  1. ZOLPIDEM [Suspect]
     Indication: INSOMNIA
     Dosage: 10 MG ONE A NIGHT
     Dates: start: 20081212, end: 20090124

REACTIONS (12)
  - CRYING [None]
  - DEPRESSION [None]
  - DYSGEUSIA [None]
  - EATING DISORDER [None]
  - FEELING ABNORMAL [None]
  - INFLUENZA LIKE ILLNESS [None]
  - LOSS OF EMPLOYMENT [None]
  - PANIC ATTACK [None]
  - PARAESTHESIA [None]
  - PAROSMIA [None]
  - THINKING ABNORMAL [None]
  - WEIGHT DECREASED [None]
